FAERS Safety Report 26132243 (Version 1)
Quarter: 2025Q4

REPORT INFORMATION
  Report Type: Spontaneous
  Country: US (occurrence: US)
  Receive Date: 20251208
  Receipt Date: 20251208
  Transmission Date: 20260117
  Serious: Yes (Hospitalization, Other)
  Sender: ASTELLAS
  Company Number: US-ASTELLAS-2025-AER-067844

PATIENT
  Age: 70 Year
  Sex: Male

DRUGS (5)
  1. AMPHOTERICIN B [Interacting]
     Active Substance: AMPHOTERICIN B
     Indication: Candida infection
     Route: 065
  2. AMPHOTERICIN B [Interacting]
     Active Substance: AMPHOTERICIN B
     Indication: Disease recurrence
  3. MICAFUNGIN [Interacting]
     Active Substance: MICAFUNGIN SODIUM
     Indication: Candida infection
     Route: 065
  4. MICAFUNGIN [Interacting]
     Active Substance: MICAFUNGIN SODIUM
     Indication: Evidence based treatment
     Route: 065
  5. MICAFUNGIN [Interacting]
     Active Substance: MICAFUNGIN SODIUM
     Indication: Disease recurrence

REACTIONS (3)
  - Hypokalaemia [Recovered/Resolved]
  - Hypomagnesaemia [Unknown]
  - Drug interaction [Unknown]
